FAERS Safety Report 20419456 (Version 1)
Quarter: 2022Q1

REPORT INFORMATION
  Report Type: Other
  Country: TR (occurrence: None)
  Receive Date: 20220203
  Receipt Date: 20220203
  Transmission Date: 20220423
  Serious: Yes (Death, Hospitalization)
  Sender: FDA-Public Use
  Company Number: TR-ROCHE-3014637

PATIENT
  Age: 50 Year
  Sex: Male

DRUGS (19)
  1. RITUXIMAB [Suspect]
     Active Substance: RITUXIMAB
     Indication: Splenic marginal zone lymphoma
     Route: 065
  2. IFOSFAMIDE [Suspect]
     Active Substance: IFOSFAMIDE
     Indication: Splenic marginal zone lymphoma
     Route: 065
  3. CARBOPLATIN [Suspect]
     Active Substance: CARBOPLATIN
     Indication: Splenic marginal zone lymphoma
     Route: 065
  4. ETOPOSIDE [Suspect]
     Active Substance: ETOPOSIDE
     Indication: Splenic marginal zone lymphoma
     Route: 065
  5. OSELTAMIVIR [Suspect]
     Active Substance: OSELTAMIVIR
     Indication: COVID-19
     Route: 065
  6. BENDAMUSTINE [Suspect]
     Active Substance: BENDAMUSTINE
     Indication: Splenic marginal zone lymphoma
     Route: 065
  7. HYDROXYCHLOROQUINE [Concomitant]
     Active Substance: HYDROXYCHLOROQUINE
  8. FAVIPIRAVIR [Concomitant]
     Active Substance: FAVIPIRAVIR
  9. METRONIDAZOLE [Concomitant]
     Active Substance: METRONIDAZOLE
     Route: 042
  10. METHYLPREDNISOLONE [Concomitant]
     Active Substance: METHYLPREDNISOLONE
     Route: 042
  11. VANCOMYCIN [Concomitant]
     Active Substance: VANCOMYCIN
  12. MEROPENEM [Concomitant]
     Active Substance: MEROPENEM
  13. ANIDULAFUNGIN [Concomitant]
     Active Substance: ANIDULAFUNGIN
  14. TIGECYCLINE [Concomitant]
     Active Substance: TIGECYCLINE
  15. SULFAMETHOXAZOLE\TRIMETHOPRIM [Concomitant]
     Active Substance: SULFAMETHOXAZOLE\TRIMETHOPRIM
  16. LEVOFLOXACIN [Concomitant]
     Active Substance: LEVOFLOXACIN
  17. PIPERACILLIN [Concomitant]
     Active Substance: PIPERACILLIN
  18. TAZOBACTAM [Concomitant]
     Active Substance: TAZOBACTAM
  19. CIPROFLOXACIN [Concomitant]
     Active Substance: CIPROFLOXACIN

REACTIONS (6)
  - COVID-19 [Fatal]
  - Sepsis [Fatal]
  - Pneumonia [Unknown]
  - Febrile neutropenia [Unknown]
  - Hypogammaglobulinaemia [Unknown]
  - Off label use [Unknown]

NARRATIVE: CASE EVENT DATE: 20200101
